FAERS Safety Report 19294724 (Version 1)
Quarter: 2021Q2

REPORT INFORMATION
  Report Type: Spontaneous
  Country: US (occurrence: US)
  Receive Date: 20210524
  Receipt Date: 20210524
  Transmission Date: 20210717
  Serious: Yes (Other)
  Sender: FDA-Public Use
  Company Number: None

PATIENT
  Age: 67 Year
  Sex: Female
  Weight: 49.05 kg

DRUGS (1)
  1. RECLAST [Suspect]
     Active Substance: ZOLEDRONIC ACID
     Indication: INFUSION
     Dosage: ?          OTHER FREQUENCY:ONCE PER YEAR;?
     Route: 041
     Dates: start: 20210505, end: 20210505

REACTIONS (10)
  - Pyrexia [None]
  - Myalgia [None]
  - Fatigue [None]
  - Infusion related reaction [None]
  - Malaise [None]
  - Blood alkaline phosphatase increased [None]
  - Aspartate aminotransferase increased [None]
  - Drug-induced liver injury [None]
  - Chills [None]
  - Alanine aminotransferase increased [None]

NARRATIVE: CASE EVENT DATE: 20210505
